FAERS Safety Report 10706589 (Version 1)
Quarter: 2015Q1

REPORT INFORMATION
  Report Type: Spontaneous
  Country: US (occurrence: None)
  Receive Date: 20150109
  Receipt Date: 20150109
  Transmission Date: 20150721
  Serious: Yes (Disabling)
  Sender: FDA-Public Use
  Company Number: None

PATIENT
  Age: 77 Year
  Sex: Female
  Weight: 54.43 kg

DRUGS (1)
  1. LEVOFLOXACIN. [Suspect]
     Active Substance: LEVOFLOXACIN
     Indication: CHRONIC SINUSITIS
     Dosage: 1 PILL ONCE DAILY
     Dates: start: 20141219, end: 20141229

REACTIONS (5)
  - Nervous system disorder [None]
  - Tendonitis [None]
  - Blood glucose abnormal [None]
  - Gastric disorder [None]
  - Dizziness [None]

NARRATIVE: CASE EVENT DATE: 20150108
